FAERS Safety Report 7327919-6 (Version None)
Quarter: 2011Q1

REPORT INFORMATION
  Report Type: 
  Country: None (occurrence: None)
  Receive Date: 20110218
  Receipt Date: 20110209
  Transmission Date: 20110831
  Serious: Yes (Hospitalization)
  Sender: FDA-Public Use
  Company Number: 027214

PATIENT
  Age: 47 Year
  Weight: 82 kg

DRUGS (5)
  1. TRILEPTAL [Concomitant]
  2. LACOSAMIDE [Suspect]
     Indication: EPILEPSY
     Dosage: (200 MG ORAL), (50 MG ORAL), (300 MG ORAL)
     Route: 048
     Dates: start: 20091219, end: 20091201
  3. LACOSAMIDE [Suspect]
     Indication: EPILEPSY
     Dosage: (200 MG ORAL), (50 MG ORAL), (300 MG ORAL)
     Route: 048
     Dates: start: 20100511
  4. TOPAMAX [Concomitant]
  5. FLUOXETINE [Concomitant]

REACTIONS (1)
  - EPILEPSY [None]
